FAERS Safety Report 14130060 (Version 1)
Quarter: 2017Q4

REPORT INFORMATION
  Report Type: Spontaneous
  Country: US (occurrence: US)
  Receive Date: 20171026
  Receipt Date: 20171026
  Transmission Date: 20180321
  Serious: Yes (Other)
  Sender: FDA-Public Use
  Company Number: US-TEVA-812374ACC

PATIENT
  Age: 64 Year
  Sex: Male

DRUGS (1)
  1. DULOXETINE. [Suspect]
     Active Substance: DULOXETINE
     Indication: DEPRESSION
     Dates: start: 20170921, end: 20170925

REACTIONS (14)
  - Chest pain [Recovering/Resolving]
  - Vomiting [Recovering/Resolving]
  - Dry mouth [Unknown]
  - Headache [Unknown]
  - Nervousness [Recovering/Resolving]
  - Decreased appetite [Recovering/Resolving]
  - Dysgeusia [Recovering/Resolving]
  - Tremor [Recovering/Resolving]
  - Confusional state [Unknown]
  - Dysarthria [Unknown]
  - Eye disorder [Unknown]
  - Melaena [Unknown]
  - Nausea [Not Recovered/Not Resolved]
  - Memory impairment [Recovering/Resolving]

NARRATIVE: CASE EVENT DATE: 20170921
